FAERS Safety Report 17629772 (Version 1)
Quarter: 2020Q2

REPORT INFORMATION
  Report Type: Spontaneous
  Country: FR (occurrence: FR)
  Receive Date: 20200406
  Receipt Date: 20200406
  Transmission Date: 20200713
  Serious: Yes (Other)
  Sender: FDA-Public Use
  Company Number: FR-ACCORD-178101

PATIENT
  Age: 66 Year
  Sex: Male
  Weight: 52 kg

DRUGS (11)
  1. ALIMTA [Suspect]
     Active Substance: PEMETREXED DISODIUM
     Indication: LUNG NEOPLASM MALIGNANT
     Dosage: STRENGTH: 500 MG
     Route: 042
     Dates: start: 20200129, end: 20200129
  2. IMOVANE [Concomitant]
     Active Substance: ZOPICLONE
  3. KEYTRUDA [Suspect]
     Active Substance: PEMBROLIZUMAB
     Indication: LUNG NEOPLASM MALIGNANT
     Dosage: STRENGTH: 50 MG
     Route: 042
     Dates: start: 20200129, end: 20200129
  4. OROZAMUDOL [Concomitant]
     Active Substance: TRAMADOL
  5. CARBOPLATIN ACCORD [Suspect]
     Active Substance: CARBOPLATIN
     Indication: LUNG NEOPLASM MALIGNANT
     Route: 042
     Dates: start: 20200129, end: 20200129
  6. NICOPATCHLIB [Concomitant]
     Active Substance: NICOTINE
  7. PRIMPERAN [Concomitant]
     Active Substance: METOCLOPRAMIDE HYDROCHLORIDE
  8. ZAMUDOL [Concomitant]
     Active Substance: TRAMADOL HYDROCHLORIDE
     Dosage: STRENGTH: 100 MG
  9. PANTOPRAZOLE [Concomitant]
     Active Substance: PANTOPRAZOLE
  10. SPASFON [PHLOROGLUCINOL;TRIMETHYLPHLOROGLUCINOL] [Concomitant]
     Active Substance: PHLOROGLUCINOL\1,3,5-TRIMETHOXYBENZENE
  11. PARACETAMOL [Concomitant]
     Active Substance: ACETAMINOPHEN

REACTIONS (5)
  - Erythropenia [Recovering/Resolving]
  - Anaemia [Recovering/Resolving]
  - Thrombocytopenia [Recovering/Resolving]
  - General physical health deterioration [Recovering/Resolving]
  - Neutropenia [Recovering/Resolving]

NARRATIVE: CASE EVENT DATE: 202002
